FAERS Safety Report 13566204 (Version 1)
Quarter: 2017Q2

REPORT INFORMATION
  Report Type: Spontaneous
  Country: US (occurrence: US)
  Receive Date: 20170519
  Receipt Date: 20170519
  Transmission Date: 20170830
  Serious: No
  Sender: FDA-Public Use
  Company Number: None

PATIENT
  Age: 65 Year
  Sex: Female

DRUGS (1)
  1. AFINITOR [Suspect]
     Active Substance: EVEROLIMUS
     Indication: HEPATOBILIARY CANCER
     Route: 048
     Dates: start: 20170210

REACTIONS (3)
  - Oedema peripheral [None]
  - Discomfort [None]
  - Therapy non-responder [None]

NARRATIVE: CASE EVENT DATE: 20170504
